FAERS Safety Report 8108422-2 (Version None)
Quarter: 2012Q1

REPORT INFORMATION
  Report Type: 
  Country: None (occurrence: None)
  Receive Date: 20120202
  Receipt Date: 20120111
  Transmission Date: 20120608
  Serious: No
  Sender: FDA-Public Use
  Company Number: US-AMGEN-USASP2012002099

PATIENT
  Age: 60 Year
  Sex: Female

DRUGS (4)
  1. NORVASC [Concomitant]
     Dosage: UNK
  2. ARAVA [Concomitant]
     Dosage: UNK
  3. ENBREL [Suspect]
     Indication: RHEUMATOID ARTHRITIS
     Dosage: 50 MG, QWK
  4. PREDNISONE TAB [Concomitant]

REACTIONS (3)
  - NASOPHARYNGITIS [None]
  - PULMONARY CONGESTION [None]
  - COUGH [None]
